FAERS Safety Report 7218889-X (Version None)
Quarter: 2011Q1

REPORT INFORMATION
  Report Type: 
  Country: None (occurrence: None)
  Receive Date: 20110110
  Receipt Date: 20110105
  Transmission Date: 20110831
  Serious: Yes (Other)
  Sender: FDA-Public Use
  Company Number: DE-RB-019251-10

PATIENT
  Sex: Female

DRUGS (1)
  1. TEMGESIC [Suspect]
     Indication: PAIN MANAGEMENT
     Dosage: TAKES ONE TO TWO TIMES DAILY. STRENGTH UNKNOWN.
     Route: 065
     Dates: start: 20050101

REACTIONS (2)
  - RETRO-ORBITAL NEOPLASM [None]
  - VISUAL IMPAIRMENT [None]
